FAERS Safety Report 4712968-4 (Version None)
Quarter: 2005Q3

REPORT INFORMATION
  Report Type: 
  Country: None (occurrence: None)
  Receive Date: 20050712
  Receipt Date: 20050712
  Transmission Date: 20060218
  Serious: No
  Sender: FDA-Public Use
  Company Number: None

PATIENT
  Age: 17 Year
  Sex: Female
  Weight: 86.1834 kg

DRUGS (1)
  1. LIDOCAINE 2% [Suspect]
     Dosage: 2% LIDOCAINE 4 TIMES DAILY TOPICAL
     Route: 061
     Dates: start: 20050710, end: 20050710

REACTIONS (1)
  - UNEVALUABLE EVENT [None]
